FAERS Safety Report 5706334-2 (Version None)
Quarter: 2008Q2

REPORT INFORMATION
  Report Type: 
  Country: None (occurrence: None)
  Receive Date: 20080404
  Receipt Date: 20080123
  Transmission Date: 20081010
  Serious: Yes (Life-Threatening, Hospitalization)
  Sender: FDA-Public Use
  Company Number: OSCN-PR-0801S-0042

PATIENT
  Age: 48 Year
  Sex: Male

DRUGS (1)
  1. OMNISCAN [Suspect]
     Indication: CEREBROVASCULAR ACCIDENT
     Dosage: 20 ML, SINGLE DOSE, I.V.
     Route: 042
     Dates: start: 20080104, end: 20080104

REACTIONS (1)
  - ANAPHYLACTOID SHOCK [None]
